FAERS Safety Report 25941266 (Version 2)
Quarter: 2025Q4

REPORT INFORMATION
  Report Type: Spontaneous
  Country: CN (occurrence: CN)
  Receive Date: 20251020
  Receipt Date: 20251022
  Transmission Date: 20260118
  Serious: Yes (Hospitalization)
  Sender: PFIZER
  Company Number: CN-MLMSERVICE-20251008-PI670193-00064-1

PATIENT
  Age: 50 Year
  Sex: Female

DRUGS (25)
  1. METHYLPREDNISOLONE SODIUM SUCCINATE [Suspect]
     Active Substance: METHYLPREDNISOLONE SODIUM SUCCINATE
     Indication: Urticaria
     Dosage: 40 MG
     Route: 042
     Dates: start: 20250308
  2. METHYLPREDNISOLONE SODIUM SUCCINATE [Suspect]
     Active Substance: METHYLPREDNISOLONE SODIUM SUCCINATE
     Indication: Pruritus
     Dosage: 80 MG, 2X/DAY
     Route: 042
     Dates: start: 20250310
  3. METHYLPREDNISOLONE SODIUM SUCCINATE [Suspect]
     Active Substance: METHYLPREDNISOLONE SODIUM SUCCINATE
     Indication: Dysphagia
  4. METHYLPREDNISOLONE SODIUM SUCCINATE [Suspect]
     Active Substance: METHYLPREDNISOLONE SODIUM SUCCINATE
     Indication: Urticaria
  5. BETAMETHASONE SODIUM PHOSPHATE [Suspect]
     Active Substance: BETAMETHASONE SODIUM PHOSPHATE
     Indication: Urticaria
     Dosage: 8 MG
     Route: 042
     Dates: start: 20250308
  6. BETAMETHASONE SODIUM PHOSPHATE [Suspect]
     Active Substance: BETAMETHASONE SODIUM PHOSPHATE
     Indication: Pruritus
     Dosage: 12 MG, 1X/DAY
     Route: 042
     Dates: start: 20250314, end: 20250315
  7. BETAMETHASONE SODIUM PHOSPHATE [Suspect]
     Active Substance: BETAMETHASONE SODIUM PHOSPHATE
     Indication: Dysphagia
     Dosage: 4 MG, 1X/DAY
     Route: 042
     Dates: start: 20250318, end: 20250319
  8. DEXAMETHASONE SODIUM PHOSPHATE [Suspect]
     Active Substance: DEXAMETHASONE SODIUM PHOSPHATE
     Indication: Urticaria
     Dosage: 5 MG
     Route: 042
     Dates: start: 20250308
  9. DEXAMETHASONE SODIUM PHOSPHATE [Suspect]
     Active Substance: DEXAMETHASONE SODIUM PHOSPHATE
     Indication: Pruritus
  10. DEXAMETHASONE SODIUM PHOSPHATE [Suspect]
     Active Substance: DEXAMETHASONE SODIUM PHOSPHATE
     Indication: Dysphagia
  11. BUDESONIDE [Suspect]
     Active Substance: BUDESONIDE
     Indication: Urticaria
     Dosage: 1 MG, 2X/DAY; SUSPENSION WAS ADMINISTERED VIA NEBULIZATION
     Route: 055
     Dates: start: 20250310
  12. BUDESONIDE [Suspect]
     Active Substance: BUDESONIDE
     Indication: Pruritus
  13. DIPHENHYDRAMINE [Concomitant]
     Active Substance: DIPHENHYDRAMINE
     Indication: Urticaria
     Dosage: 20 MG
     Route: 042
     Dates: start: 20250308
  14. DIPHENHYDRAMINE [Concomitant]
     Active Substance: DIPHENHYDRAMINE
     Indication: Pruritus
  15. DIPHENHYDRAMINE [Concomitant]
     Active Substance: DIPHENHYDRAMINE
     Indication: Dysphagia
  16. CALCIUM GLUCONATE [Concomitant]
     Active Substance: CALCIUM GLUCONATE
     Indication: Urticaria
     Dosage: 10 MG
     Route: 042
     Dates: start: 20250308
  17. CALCIUM GLUCONATE [Concomitant]
     Active Substance: CALCIUM GLUCONATE
     Indication: Pruritus
     Dosage: 20 ML, 1X/DAY
     Route: 042
     Dates: start: 20250310
  18. CALCIUM GLUCONATE [Concomitant]
     Active Substance: CALCIUM GLUCONATE
     Indication: Dysphagia
     Dosage: 20 ML, 1X/DAY
     Route: 042
     Dates: start: 20250314, end: 20250315
  19. CALCIUM GLUCONATE [Concomitant]
     Active Substance: CALCIUM GLUCONATE
     Dosage: 20 ML, 1X/DAY
     Route: 042
     Dates: start: 20250318, end: 20250319
  20. FUROSEMIDE [Concomitant]
     Active Substance: FUROSEMIDE
     Indication: Urticaria
     Dosage: 10 MG
     Route: 042
     Dates: start: 20250310
  21. FUROSEMIDE [Concomitant]
     Active Substance: FUROSEMIDE
     Indication: Pruritus
  22. EBASTINE [Concomitant]
     Active Substance: EBASTINE
     Indication: Urticaria
     Dosage: 10 MG, 1X/DAY
     Route: 048
     Dates: start: 20250310
  23. EBASTINE [Concomitant]
     Active Substance: EBASTINE
     Indication: Pruritus
  24. LORATADINE [Concomitant]
     Active Substance: LORATADINE
     Indication: Urticaria
     Dosage: 10 MG, 1X/DAY
     Route: 048
     Dates: start: 20250310
  25. LORATADINE [Concomitant]
     Active Substance: LORATADINE
     Indication: Pruritus

REACTIONS (6)
  - Urticaria [Recovered/Resolved]
  - Condition aggravated [Recovered/Resolved]
  - Throat tightness [Recovered/Resolved]
  - Condition aggravated [Recovered/Resolved]
  - Pyrexia [Recovered/Resolved]
  - Drug ineffective [Unknown]

NARRATIVE: CASE EVENT DATE: 20250301
